FAERS Safety Report 15478702 (Version 1)
Quarter: 2018Q4

REPORT INFORMATION
  Report Type: Spontaneous
  Country: US (occurrence: US)
  Receive Date: 20181003
  Receipt Date: 20181003
  Transmission Date: 20190205
  Serious: Yes (Hospitalization)
  Sender: FDA-Public Use
  Company Number: None

PATIENT
  Age: 13 Year
  Sex: Male

DRUGS (1)
  1. SAIZEN [Suspect]
     Active Substance: SOMATROPIN
     Dates: start: 20160510

REACTIONS (2)
  - Therapy cessation [None]
  - Type 1 diabetes mellitus [None]

NARRATIVE: CASE EVENT DATE: 20180923
